FAERS Safety Report 7463557-2 (Version None)
Quarter: 2011Q2

REPORT INFORMATION
  Report Type: 
  Country: None (occurrence: None)
  Receive Date: 20110506
  Receipt Date: 20110427
  Transmission Date: 20111010
  Serious: Yes (Hospitalization)
  Sender: FDA-Public Use
  Company Number: US-WATSON-2011-05821

PATIENT
  Age: 70 Year
  Sex: Female
  Weight: 99.8 kg

DRUGS (4)
  1. LASIX [Concomitant]
     Dosage: UNKNOWN DOSE TAKEN FOR MANY YEARS
     Route: 065
  2. INSULIN [Concomitant]
     Indication: DIABETES MELLITUS
     Dosage: SUB Q INJECTIONS
     Route: 058
     Dates: start: 19910101
  3. ALENDRONATE SODIUM [Suspect]
     Indication: OSTEOPOROSIS
     Dosage: 70 MG, 1/WEEK
     Route: 048
     Dates: start: 20100501, end: 20110401
  4. LASIX [Concomitant]
     Indication: FLUID RETENTION
     Dosage: DOSE INCREASED 2 MONTHS AGO (UNKNOWN DOSE)
     Route: 065
     Dates: start: 20110201

REACTIONS (17)
  - HEAD INJURY [None]
  - BACK PAIN [None]
  - JOINT WARMTH [None]
  - FALL [None]
  - URINARY TRACT INFECTION [None]
  - JOINT SWELLING [None]
  - SKIN HAEMORRHAGE [None]
  - LOSS OF CONSCIOUSNESS [None]
  - ABDOMINAL PAIN LOWER [None]
  - DYSURIA [None]
  - WEIGHT INCREASED [None]
  - SKIN EXFOLIATION [None]
  - DRY SKIN [None]
  - FLUID RETENTION [None]
  - NAUSEA [None]
  - URTICARIA [None]
  - PRURITUS [None]
